FAERS Safety Report 16633197 (Version 1)
Quarter: 2019Q3

REPORT INFORMATION
  Report Type: Spontaneous
  Country: ES (occurrence: ES)
  Receive Date: 20190725
  Receipt Date: 20190725
  Transmission Date: 20191004
  Serious: Yes (Other)
  Sender: FDA-Public Use
  Company Number: ES-JNJFOC-20190726660

PATIENT
  Age: 41 Year
  Sex: Male

DRUGS (3)
  1. REMICADE [Suspect]
     Active Substance: INFLIXIMAB
     Route: 042
     Dates: end: 2018
  2. REMICADE [Suspect]
     Active Substance: INFLIXIMAB
     Indication: COLITIS ULCERATIVE
     Route: 042
  3. REMICADE [Suspect]
     Active Substance: INFLIXIMAB
     Route: 042
     Dates: start: 201801

REACTIONS (10)
  - Enteritis [Unknown]
  - Drug specific antibody present [Unknown]
  - Megacolon [Unknown]
  - Erythema nodosum [Unknown]
  - Drug level below therapeutic [Unknown]
  - Drug ineffective [Unknown]
  - Anal fistula [Unknown]
  - Anastomotic stenosis [Unknown]
  - Pouchitis [Recovering/Resolving]
  - Arthralgia [Unknown]

NARRATIVE: CASE EVENT DATE: 2012
